FAERS Safety Report 12913138 (Version 1)
Quarter: 2016Q4

REPORT INFORMATION
  Report Type: Spontaneous
  Country: US (occurrence: US)
  Receive Date: 20161104
  Receipt Date: 20161104
  Transmission Date: 20170207
  Serious: No
  Sender: FDA-Public Use
  Company Number: US-ANACOR-2016ANA00240

PATIENT
  Sex: Male
  Weight: 80.73 kg

DRUGS (9)
  1. SIMVASTATIN. [Concomitant]
     Active Substance: SIMVASTATIN
  2. KERYDIN [Suspect]
     Active Substance: TAVABOROLE
     Indication: ONYCHOMYCOSIS
     Dosage: UNK, 2X/DAY
     Route: 061
     Dates: start: 201506, end: 2016
  3. KERYDIN [Suspect]
     Active Substance: TAVABOROLE
     Dosage: UNK, 1X/DAY
     Route: 061
     Dates: start: 2016
  4. WELLBUTRIN [Concomitant]
     Active Substance: BUPROPION HYDROCHLORIDE
  5. LISINOPRIL. [Concomitant]
     Active Substance: LISINOPRIL
  6. LEVOTHYROXINE. [Concomitant]
     Active Substance: LEVOTHYROXINE
  7. DOXAZOSIN [Concomitant]
     Active Substance: DOXAZOSIN\DOXAZOSIN MESYLATE
  8. METOPROLOL. [Concomitant]
     Active Substance: METOPROLOL
  9. DESIPRAMINE [Concomitant]
     Active Substance: DESIPRAMINE

REACTIONS (1)
  - Nail growth abnormal [Not Recovered/Not Resolved]

NARRATIVE: CASE EVENT DATE: 2016
